FAERS Safety Report 9725404 (Version 1)
Quarter: 2013Q4

REPORT INFORMATION
  Report Type: Spontaneous
  Country: US (occurrence: None)
  Receive Date: 20131202
  Receipt Date: 20131202
  Transmission Date: 20140711
  Serious: Yes (Disabling)
  Sender: FDA-Public Use
  Company Number: None

PATIENT
  Age: 63 Year
  Sex: Female
  Weight: 44 kg

DRUGS (1)
  1. LEVAQUIN [Suspect]
     Indication: PNEUMONIA
     Dosage: 1 ONCE DAILY TAKEN BY MOUTH
     Route: 048

REACTIONS (12)
  - Tendonitis [None]
  - Neuropathy peripheral [None]
  - Gastrointestinal pain [None]
  - Nervous system disorder [None]
  - Anxiety [None]
  - Orthostatic hypotension [None]
  - Job dissatisfaction [None]
  - Insomnia [None]
  - Pain [None]
  - Weight decreased [None]
  - No therapeutic response [None]
  - Quality of life decreased [None]
